FAERS Safety Report 10144476 (Version 2)
Quarter: 2014Q2

REPORT INFORMATION
  Report Type: Spontaneous
  Country: US (occurrence: US)
  Receive Date: 20140430
  Receipt Date: 20140520
  Transmission Date: 20141212
  Serious: No
  Sender: FDA-Public Use
  Company Number: US-TEVA-477629USA

PATIENT
  Age: 41 Year
  Sex: Female
  Weight: 52.66 kg

DRUGS (7)
  1. NUVIGIL [Suspect]
     Indication: INSOMNIA
     Dates: start: 201402
  2. PROVIGIL [Suspect]
  3. LEVOTHYROXINE [Concomitant]
     Indication: HYPOTHYROIDISM
     Dosage: 75 MICROGRAM DAILY;
     Route: 048
  4. FISH OIL [Concomitant]
     Indication: NUTRITIONAL SUPPLEMENTATION
  5. MULTIVITAMIN [Concomitant]
     Indication: VITAMIN SUPPLEMENTATION
     Route: 048
  6. CETIRIZINE [Concomitant]
     Indication: HYPERSENSITIVITY
     Dosage: 10 MILLIGRAM DAILY;
     Route: 048
  7. VITAMIN B12 [Concomitant]
     Indication: VITAMIN SUPPLEMENTATION
     Route: 048

REACTIONS (6)
  - Fatigue [Not Recovered/Not Resolved]
  - Asthenia [Not Recovered/Not Resolved]
  - Somnolence [Not Recovered/Not Resolved]
  - Hypersensitivity [Unknown]
  - Sinus disorder [Unknown]
  - Off label use [Unknown]
